FAERS Safety Report 5323078-X (Version None)
Quarter: 2007Q2

REPORT INFORMATION
  Report Type: 
  Country: None (occurrence: None)
  Receive Date: 20070507
  Receipt Date: 20070425
  Transmission Date: 20071010
  Serious: Yes (Hospitalization, Other)
  Sender: FDA-Public Use
  Company Number: 430018M07USA

PATIENT
  Age: 42 Year
  Sex: Male
  Weight: 63.5 kg

DRUGS (4)
  1. NOVANTRONE [Suspect]
     Indication: ACUTE MYELOID LEUKAEMIA
     Dates: start: 20070307, end: 20070311
  2. CEP-701 (INVESTIGATIONAL DRUG) [Suspect]
     Dosage: 80 MG, 2 IN 1 DAYS, ORAL
     Route: 048
     Dates: start: 20070313, end: 20070410
  3. ETOPOSIDE [Suspect]
     Dates: start: 20070307, end: 20070311
  4. CYTARABINE [Suspect]
     Dates: start: 20070307, end: 20070311

REACTIONS (17)
  - ABDOMINAL PAIN [None]
  - ACUTE RESPIRATORY FAILURE [None]
  - BACTERIAL INFECTION [None]
  - BLOOD CULTURE POSITIVE [None]
  - BLOOD PH DECREASED [None]
  - CLOSTRIDIUM DIFFICILE COLITIS [None]
  - COLITIS [None]
  - CONSTIPATION [None]
  - ENTEROCOLITIS INFECTIOUS [None]
  - FULL BLOOD COUNT DECREASED [None]
  - HYPOVOLAEMIA [None]
  - MEGACOLON [None]
  - MUCOSAL INFLAMMATION [None]
  - NEUTROPENIA [None]
  - NO THERAPEUTIC RESPONSE [None]
  - RENAL FAILURE ACUTE [None]
  - SEPSIS [None]
